FAERS Safety Report 5487977-0 (Version None)
Quarter: 2007Q4

REPORT INFORMATION
  Report Type: 
  Country: None (occurrence: None)
  Receive Date: 20071001
  Receipt Date: 20070410
  Transmission Date: 20080405
  Serious: Yes (Other)
  Sender: FDA-Public Use
  Company Number: 200710699BWH

PATIENT
  Age: 51 Year
  Sex: Male
  Weight: 84.369 kg

DRUGS (3)
  1. CIPRO [Suspect]
     Indication: DRUG USE FOR UNKNOWN INDICATION
  2. AGRYLIN [Suspect]
     Indication: POLYCYTHAEMIA VERA
     Dosage: 0.5 MG, QID, ORAL
     Dates: start: 20030506, end: 20070206
  3. AGRYLIN [Suspect]
     Indication: POLYCYTHAEMIA VERA
     Dosage: 0.5 MG, QID, ORAL
     Dates: start: 20070216

REACTIONS (1)
  - PLATELET COUNT DECREASED [None]
